FAERS Safety Report 19483724 (Version 1)
Quarter: 2021Q3

REPORT INFORMATION
  Report Type: Other
  Country: US (occurrence: US)
  Receive Date: 20210701
  Receipt Date: 20210701
  Transmission Date: 20211014
  Serious: Yes (Life-Threatening, Hospitalization)
  Sender: FDA-Public Use
  Company Number: US-C B FLEET CO INC-202106-US-002162

PATIENT
  Age: 72 Year
  Sex: Female

DRUGS (2)
  1. ASPIRIN. [Suspect]
     Active Substance: ASPIRIN
     Indication: HEADACHE
     Dosage: DOSAGE UNKNOWN
     Route: 048
  2. ASPIRIN. [Suspect]
     Active Substance: ASPIRIN
     Indication: OSTEOARTHRITIS

REACTIONS (2)
  - Respiratory alkalosis [Recovered/Resolved]
  - Metabolic acidosis [Recovered/Resolved]
